FAERS Safety Report 11706848 (Version 16)
Quarter: 2019Q3

REPORT INFORMATION
  Report Type: Report from Study
  Country: US (occurrence: US)
  Receive Date: 20151106
  Receipt Date: 20190904
  Transmission Date: 20191004
  Serious: Yes (Hospitalization, Disabling, Other)
  Sender: FDA-Public Use
  Company Number: US-SA-2015SA117012

PATIENT
  Age: 53 Year
  Sex: Female

DRUGS (4)
  1. ALEMTUZUMAB [Suspect]
     Active Substance: ALEMTUZUMAB
     Indication: MULTIPLE SCLEROSIS
     Dosage: 12 MG,QD
     Route: 041
     Dates: start: 20150727, end: 20150731
  2. ALEMTUZUMAB [Suspect]
     Active Substance: ALEMTUZUMAB
     Dosage: 12 MG,QD
     Route: 041
     Dates: start: 20160801, end: 20160803
  3. BIOTIN [Concomitant]
     Active Substance: BIOTIN
     Dosage: UNK, UNK
  4. AZO [Concomitant]
     Active Substance: PHENAZOPYRIDINE HYDROCHLORIDE
     Indication: PROPHYLAXIS
     Dosage: UNK UNK, UNK

REACTIONS (65)
  - Gait inability [Not Recovered/Not Resolved]
  - Fatigue [Not Recovered/Not Resolved]
  - Ulcer [Unknown]
  - Urine odour abnormal [Not Recovered/Not Resolved]
  - Hospitalisation [Unknown]
  - Central nervous system lesion [Not Recovered/Not Resolved]
  - Bradycardia [Not Recovered/Not Resolved]
  - Haemoglobin decreased [Unknown]
  - Erythema [Unknown]
  - Catheter site vesicles [Not Recovered/Not Resolved]
  - Abdominal distension [Not Recovered/Not Resolved]
  - Rehabilitation therapy [Recovered/Resolved]
  - Fungal infection [Not Recovered/Not Resolved]
  - Cellulitis [Not Recovered/Not Resolved]
  - Peripheral swelling [Not Recovered/Not Resolved]
  - Urinary tract infection [Not Recovered/Not Resolved]
  - Pyrexia [Not Recovered/Not Resolved]
  - Cystitis [Recovered/Resolved]
  - Muscle spasms [Not Recovered/Not Resolved]
  - Hypoaesthesia [Not Recovered/Not Resolved]
  - Feeling cold [Not Recovered/Not Resolved]
  - Limb discomfort [Unknown]
  - Decubitus ulcer [Not Recovered/Not Resolved]
  - General physical health deterioration [Not Recovered/Not Resolved]
  - Skin discolouration [Not Recovered/Not Resolved]
  - Vertigo [Not Recovered/Not Resolved]
  - Bedridden [Not Recovered/Not Resolved]
  - Condition aggravated [Recovering/Resolving]
  - Burning sensation [Not Recovered/Not Resolved]
  - Dysstasia [Not Recovered/Not Resolved]
  - Grip strength decreased [Not Recovered/Not Resolved]
  - Peroneal nerve palsy [Not Recovered/Not Resolved]
  - Fall [Unknown]
  - Joint range of motion decreased [Not Recovered/Not Resolved]
  - Dysuria [Not Recovered/Not Resolved]
  - Paraesthesia [Not Recovered/Not Resolved]
  - Mobility decreased [Not Recovered/Not Resolved]
  - Bladder catheterisation [Not Recovered/Not Resolved]
  - Movement disorder [Recovering/Resolving]
  - Blood thyroid stimulating hormone decreased [Recovered/Resolved]
  - Pyrexia [Recovered/Resolved]
  - Dysgraphia [Not Recovered/Not Resolved]
  - Fluid intake reduced [Unknown]
  - Weight increased [Not Recovered/Not Resolved]
  - Somnolence [Not Recovered/Not Resolved]
  - Dyspnoea [Not Recovered/Not Resolved]
  - Drug ineffective [Unknown]
  - Kidney infection [Recovered/Resolved]
  - Rash [Recovered/Resolved]
  - Drug monitoring procedure not performed [Unknown]
  - Blood pressure increased [Recovered/Resolved]
  - Burning sensation [Unknown]
  - Condition aggravated [Not Recovered/Not Resolved]
  - Pain [Unknown]
  - Pain in extremity [Not Recovered/Not Resolved]
  - Musculoskeletal stiffness [Not Recovered/Not Resolved]
  - Catheter site related reaction [Not Recovered/Not Resolved]
  - Spinal cord disorder [Not Recovered/Not Resolved]
  - Nephrolithiasis [Unknown]
  - Dry skin [Unknown]
  - Feeling abnormal [Unknown]
  - Arthralgia [Not Recovered/Not Resolved]
  - Skin texture abnormal [Not Recovered/Not Resolved]
  - Wheezing [Not Recovered/Not Resolved]
  - Urinary incontinence [Unknown]

NARRATIVE: CASE EVENT DATE: 2015
